FAERS Safety Report 9806714 (Version 1)
Quarter: 2014Q1

REPORT INFORMATION
  Report Type: Spontaneous
  Country: US (occurrence: US)
  Receive Date: 20140109
  Receipt Date: 20140109
  Transmission Date: 20141002
  Serious: No
  Sender: FDA-Public Use
  Company Number: US-ABBVIE-13P-163-1043122-00

PATIENT
  Sex: Male
  Weight: 75.36 kg

DRUGS (4)
  1. VICODIN [Suspect]
     Indication: PAIN
     Dates: start: 2012
  2. GABAPENTIN [Suspect]
     Indication: NERVE INJURY
     Dates: start: 2012
  3. GABAPENTIN [Suspect]
  4. CRESTOR [Concomitant]
     Indication: BLOOD CHOLESTEROL INCREASED
     Dosage: 20 MG DAILY

REACTIONS (1)
  - Dysphonia [Not Recovered/Not Resolved]
